FAERS Safety Report 9786526 (Version 3)
Quarter: 2014Q1

REPORT INFORMATION
  Report Type: Spontaneous
  Country: US (occurrence: US)
  Receive Date: 20131227
  Receipt Date: 20140115
  Transmission Date: 20141002
  Serious: Yes (Hospitalization)
  Sender: FDA-Public Use
  Company Number: US-SA-CERZ-1001290

PATIENT
  Age: 68 Year
  Sex: Female
  Weight: 53.4 kg

DRUGS (7)
  1. IMIGLUCERASE [Suspect]
     Indication: GAUCHER^S DISEASE
     Dosage: 3200 U, Q2W DOSE:60 UNIT(S)/KILOGRAM BODYWEIGHT
     Route: 042
     Dates: start: 199704
  2. IBANDRONATE SODIUM [Concomitant]
     Indication: OSTEOPOROSIS
     Dosage: UNK
  3. VALSARTAN [Concomitant]
     Indication: HYPERTENSION
     Dosage: UNK
  4. AMLODIPINE [Concomitant]
     Indication: HYPERTENSION
     Dosage: UNK
  5. METOPROLOL [Concomitant]
     Indication: HYPERTENSION
     Dosage: UNK
  6. SINEMET [Concomitant]
     Indication: PARKINSON^S DISEASE
     Dosage: UNK
  7. LORAZEPAM [Concomitant]
     Indication: ANXIETY
     Dosage: UNK

REACTIONS (2)
  - Pneumonia [Not Recovered/Not Resolved]
  - Parkinson^s disease [Not Recovered/Not Resolved]
